FAERS Safety Report 9800905 (Version 2)
Quarter: 2014Q1

REPORT INFORMATION
  Report Type: Spontaneous
  Country: IT (occurrence: IT)
  Receive Date: 20140107
  Receipt Date: 20140124
  Transmission Date: 20141002
  Serious: Yes (Hospitalization)
  Sender: FDA-Public Use
  Company Number: IT-RANBAXY-2013RR-76684

PATIENT
  Age: 21 Month
  Sex: Female

DRUGS (1)
  1. AMOXICILLIN [Suspect]
     Indication: URINARY TRACT INFECTION
     Dosage: 15 ML/DAY
     Route: 048
     Dates: start: 20131121, end: 20131128

REACTIONS (2)
  - Diarrhoea [Recovered/Resolved]
  - Dysphonia [Recovered/Resolved]
